FAERS Safety Report 7442716-9 (Version None)
Quarter: 2011Q2

REPORT INFORMATION
  Report Type: 
  Country: None (occurrence: None)
  Receive Date: 20110428
  Receipt Date: 20100414
  Transmission Date: 20111010
  Serious: No
  Sender: FDA-Public Use
  Company Number: US-BAYER-201020396NA

PATIENT
  Sex: Female

DRUGS (1)
  1. YAZ [Suspect]
     Indication: CONTRACEPTION
     Dosage: UNK
     Dates: end: 20090101

REACTIONS (4)
  - INCREASED APPETITE [None]
  - WEIGHT INCREASED [None]
  - MIGRAINE [None]
  - METRORRHAGIA [None]
